FAERS Safety Report 4820713-7 (Version None)
Quarter: 2005Q4

REPORT INFORMATION
  Report Type: 
  Country: None (occurrence: None)
  Receive Date: 20051104
  Receipt Date: 20051021
  Transmission Date: 20060501
  Serious: Yes (Hospitalization, Other)
  Sender: FDA-Public Use
  Company Number: US-MERCK-0511USA00156

PATIENT
  Age: 38 Year
  Sex: Male
  Weight: 114 kg

DRUGS (9)
  1. VIOXX [Suspect]
     Indication: INTERVERTEBRAL DISC DEGENERATION
     Route: 048
     Dates: start: 19991101, end: 20040901
  2. VIOXX [Suspect]
     Route: 048
     Dates: start: 19991101, end: 20040901
  3. VIOXX [Suspect]
     Route: 048
     Dates: start: 19991101, end: 20040901
  4. VIOXX [Suspect]
     Indication: OSTEOARTHRITIS
     Route: 048
     Dates: start: 19991101, end: 20040901
  5. VIOXX [Suspect]
     Route: 048
     Dates: start: 19991101, end: 20040901
  6. VIOXX [Suspect]
     Route: 048
     Dates: start: 19991101, end: 20040901
  7. BEXTRA [Suspect]
     Indication: INFLAMMATION
     Route: 048
     Dates: end: 20030825
  8. CELEBREX [Suspect]
     Route: 065
  9. IBUPROFEN [Concomitant]
     Route: 065

REACTIONS (20)
  - ANGINA PECTORIS [None]
  - BACK DISORDER [None]
  - BACK PAIN [None]
  - BLOOD CHOLESTEROL INCREASED [None]
  - BLOOD TRIGLYCERIDES INCREASED [None]
  - CARDIAC DISORDER [None]
  - CARPAL TUNNEL SYNDROME [None]
  - CORONARY ARTERY DISEASE [None]
  - DYSPNOEA [None]
  - FATIGUE [None]
  - GASTRIC DISORDER [None]
  - HYPERTENSION [None]
  - INTERVERTEBRAL DISC PROTRUSION [None]
  - JOINT SURGERY [None]
  - LIMB INJURY [None]
  - LOW DENSITY LIPOPROTEIN INCREASED [None]
  - RESTLESS LEGS SYNDROME [None]
  - SLEEP APNOEA SYNDROME [None]
  - STOMACH DISCOMFORT [None]
  - VENTRICULAR EXTRASYSTOLES [None]
